FAERS Safety Report 10085154 (Version 1)
Quarter: 2014Q2

REPORT INFORMATION
  Report Type: Spontaneous
  Country: NZ (occurrence: NZ)
  Receive Date: 20140417
  Receipt Date: 20140417
  Transmission Date: 20141212
  Serious: Yes (Other)
  Sender: FDA-Public Use
  Company Number: CHPA2014NZ005379

PATIENT
  Sex: Male

DRUGS (8)
  1. OTRIVIN [Suspect]
     Indication: NASAL CONGESTION
     Dosage: UNK
     Route: 045
  2. OTRIVIN [Suspect]
     Indication: LACRIMATION INCREASED
  3. OTRIVIN [Suspect]
     Indication: OFF LABEL USE
  4. OXYCONTIN [Concomitant]
     Indication: PAIN
     Dosage: 60 MG, BID
     Route: 048
  5. OXYNORM [Concomitant]
     Indication: PAIN
     Dosage: 10 MG, QID
     Route: 048
  6. DILTIAZEM [Concomitant]
     Indication: CARDIAC FAILURE
     Dosage: 360 MG, QD
     Route: 048
  7. FLUTAMIDE [Concomitant]
     Dosage: 160 MG, QD
     Route: 048
  8. SYMBICORT [Concomitant]
     Indication: ASTHMA
     Dosage: 1 DF, BID
     Route: 055

REACTIONS (3)
  - Drug dependence [Not Recovered/Not Resolved]
  - Nasal congestion [Recovering/Resolving]
  - Condition aggravated [Recovering/Resolving]
